FAERS Safety Report 11571151 (Version 3)
Quarter: 2016Q3

REPORT INFORMATION
  Report Type: Spontaneous
  Country: US (occurrence: US)
  Receive Date: 20150929
  Receipt Date: 20160811
  Transmission Date: 20161109
  Serious: No
  Sender: FDA-Public Use
  Company Number: US-GLAXOSMITHKLINE-US2015GSK116586

PATIENT
  Sex: Female

DRUGS (11)
  1. FLOVENT [Suspect]
     Active Substance: FLUTICASONE PROPIONATE
     Indication: CHRONIC OBSTRUCTIVE PULMONARY DISEASE
     Dosage: 1 PUFF(S), BID
     Route: 055
  2. SEREVENT DISKUS [Suspect]
     Active Substance: SALMETEROL XINAFOATE
     Dosage: 1 PUFF(S), BID
     Route: 055
     Dates: end: 201601
  3. FLOVENT [Suspect]
     Active Substance: FLUTICASONE PROPIONATE
     Indication: ASTHMA
     Dosage: 2 PUFF(S), BID
     Route: 055
     Dates: start: 1996
  4. SEREVENT DISKUS [Suspect]
     Active Substance: SALMETEROL XINAFOATE
     Indication: CHRONIC OBSTRUCTIVE PULMONARY DISEASE
     Dosage: 1 PUFF(S), QD
     Route: 055
  5. FLOVENT [Suspect]
     Active Substance: FLUTICASONE PROPIONATE
     Dosage: 2 PUFF(S), BID
     Route: 055
     Dates: start: 201604
  6. SEREVENT DISKUS [Suspect]
     Active Substance: SALMETEROL XINAFOATE
     Indication: ASTHMA
     Dosage: 1 PUFF(S), BID
     Route: 055
     Dates: start: 1996
  7. SEREVENT DISKUS [Suspect]
     Active Substance: SALMETEROL XINAFOATE
     Dosage: 1 PUFF(S), BID
     Route: 055
     Dates: start: 201604
  8. FLOVENT [Suspect]
     Active Substance: FLUTICASONE PROPIONATE
     Dosage: 2 PUFF(S), BID
     Route: 055
     Dates: end: 201601
  9. DIGOXIN. [Concomitant]
     Active Substance: DIGOXIN
  10. FLOVENT [Suspect]
     Active Substance: FLUTICASONE PROPIONATE
     Dosage: 1 PUFF(S), BID
     Route: 055
     Dates: start: 201601, end: 20160401
  11. SEREVENT DISKUS [Suspect]
     Active Substance: SALMETEROL XINAFOATE
     Dosage: 1 PUFF(S), QD
     Route: 055
     Dates: start: 201601, end: 20160401

REACTIONS (12)
  - Inability to afford medication [Unknown]
  - Asthma [Not Recovered/Not Resolved]
  - Chronic obstructive pulmonary disease [Not Recovered/Not Resolved]
  - Heart rate abnormal [Not Recovered/Not Resolved]
  - Angiogram [Recovered/Resolved]
  - Drug dose omission [Recovered/Resolved]
  - Inappropriate schedule of drug administration [Recovered/Resolved]
  - Incorrect dose administered [Recovered/Resolved]
  - Stress [Recovering/Resolving]
  - Intentional product use issue [Recovered/Resolved]
  - Multiple allergies [Unknown]
  - Humidity intolerance [Unknown]

NARRATIVE: CASE EVENT DATE: 2008
